FAERS Safety Report 7358101-4 (Version None)
Quarter: 2011Q1

REPORT INFORMATION
  Report Type: 
  Country: None (occurrence: None)
  Receive Date: 20110307
  Receipt Date: 20100521
  Transmission Date: 20110831
  Serious: No
  Sender: FDA-Public Use
  Company Number: AEUSA201000187

PATIENT
  Age: 51 Year
  Sex: Female
  Weight: 73.0291 kg

DRUGS (8)
  1. THEOPHYLLINE [Concomitant]
  2. SPIRIVA [Concomitant]
  3. SINGULAIR [Concomitant]
  4. PROLASTIN-C [Suspect]
     Indication: ALPHA-1 ANTI-TRYPSIN DEFICIENCY
     Dosage: QW;IV
     Route: 042
     Dates: start: 20100520
  5. PROLASTIN [Concomitant]
  6. PREDNISONE [Concomitant]
  7. LORAZEPAM [Concomitant]
  8. ALBUTEROL [Concomitant]

REACTIONS (4)
  - ABDOMINAL DISCOMFORT [None]
  - GASTROENTERITIS VIRAL [None]
  - PRODUCT FORMULATION ISSUE [None]
  - DIARRHOEA [None]
